FAERS Safety Report 8953146 (Version 1)
Quarter: 2012Q4

REPORT INFORMATION
  Report Type: 
  Country: US (occurrence: US)
  Receive Date: 20121206
  Receipt Date: 20121206
  Transmission Date: 20130627
  Serious: Yes (Other)
  Sender: FDA-Public Use
  Company Number: US-AMGEN-USASP2012077204

PATIENT
  Age: 73 Year
  Sex: Female

DRUGS (3)
  1. ENBREL [Suspect]
     Indication: RHEUMATOID ARTHRITIS
     Dosage: 50 mg, qwk
     Dates: start: 20111130, end: 201205
  2. METHOTREXATE [Concomitant]
     Dosage: 15 mg, qwk
     Route: 048
     Dates: start: 20111109, end: 201205
  3. PREDNISONE [Concomitant]
     Dosage: UNK

REACTIONS (7)
  - Fall [Not Recovered/Not Resolved]
  - Limb injury [Not Recovered/Not Resolved]
  - Laceration [Not Recovered/Not Resolved]
  - Haematoma [Not Recovered/Not Resolved]
  - Impaired healing [Not Recovered/Not Resolved]
  - Animal bite [Recovered/Resolved]
  - Infected bites [Recovered/Resolved]
